FAERS Safety Report 8369839-4 (Version None)
Quarter: 2012Q2

REPORT INFORMATION
  Report Type: 
  Country: None (occurrence: None)
  Receive Date: 20120518
  Receipt Date: 20120514
  Transmission Date: 20120825
  Serious: Yes (Death, Hospitalization)
  Sender: FDA-Public Use
  Company Number: FR-SANOFI-AVENTIS-2012SA033879

PATIENT
  Age: 79 Year
  Sex: Female

DRUGS (3)
  1. LASIX [Suspect]
     Route: 065
  2. CORDARONE [Suspect]
     Route: 065
  3. CAPTOPRIL [Concomitant]

REACTIONS (1)
  - HAEMORRHAGE [None]
